FAERS Safety Report 12080651 (Version 1)
Quarter: 2016Q1

REPORT INFORMATION
  Report Type: Spontaneous
  Country: PT (occurrence: PT)
  Receive Date: 20160216
  Receipt Date: 20160216
  Transmission Date: 20160526
  Serious: Yes (Other)
  Sender: FDA-Public Use
  Company Number: PT-MYLANLABS-2016M1005728

PATIENT

DRUGS (6)
  1. FOLINIC ACID [Concomitant]
     Active Substance: LEUCOVORIN
     Indication: COLON CANCER
     Dosage: 200 MG/M2/DAY THE CHEMOTHERAPY REPEATED EVERY 3 WEEKS
     Route: 065
  2. METOCLOPRAMIDE. [Concomitant]
     Active Substance: METOCLOPRAMIDE
     Indication: ANXIETY
     Route: 065
  3. LOPRAZOLAM [Concomitant]
     Active Substance: LOPRAZOLAM
     Indication: ANXIETY
     Route: 065
  4. OXALIPLATIN. [Suspect]
     Active Substance: OXALIPLATIN
     Indication: COLON CANCER
     Dosage: ON DAY 1 AT THE DOSE OF 85 MG/M2 AS AN INFUSION THE CHEMOTHERAPY REPEATED EVERY 3 WEEKS
     Route: 050
  5. FLUOROURACIL. [Concomitant]
     Active Substance: FLUOROURACIL
     Indication: COLON CANCER
     Dosage: 400 MG/M2 BOLUS THE CHEMOTHERAPY REPEATED EVERY 3 WEEKS
     Route: 065
  6. FLUOROURACIL. [Concomitant]
     Active Substance: FLUOROURACIL
     Dosage: INFUSION OF 600 MG/M2 FOR 2 CONSECUTIVE DAYS THE CHEMOTHERAPY REPEATED EVERY 3 WEEKS
     Route: 050

REACTIONS (1)
  - Intracranial pressure increased [Recovered/Resolved]
